FAERS Safety Report 20878104 (Version 2)
Quarter: 2022Q3

REPORT INFORMATION
  Report Type: Report from Study
  Country: US (occurrence: US)
  Receive Date: 20220526
  Receipt Date: 20220720
  Transmission Date: 20221027
  Serious: Yes (Other)
  Sender: FDA-Public Use
  Company Number: US-CATALYST PHARMACEUTICALS, INC-2022CAT00100

PATIENT
  Age: 37 Year
  Sex: Female
  Weight: 89.796 kg

DRUGS (11)
  1. FIRDAPSE [Suspect]
     Active Substance: AMIFAMPRIDINE PHOSPHATE
     Indication: Myasthenic syndrome
     Dosage: 10 MG, 5X/DAY
     Route: 048
     Dates: start: 20220208, end: 2022
  2. FIRDAPSE [Suspect]
     Active Substance: AMIFAMPRIDINE PHOSPHATE
     Indication: Muscular weakness
     Dosage: 10 MG, 5X/DAY
     Route: 048
     Dates: start: 2022, end: 202203
  3. FIRDAPSE [Suspect]
     Active Substance: AMIFAMPRIDINE PHOSPHATE
     Indication: Congenital myasthenic syndrome
     Dosage: 10 MG, 5X/DAY
     Route: 048
     Dates: start: 2022, end: 20220712
  4. ADVIL [Concomitant]
     Active Substance: IBUPROFEN
     Dosage: 200 MG, AS NEEDED
  5. CLARITIN [Concomitant]
     Active Substance: LORATADINE
     Dosage: 10 MG, 1X/DAY
  6. MESTINON [Concomitant]
     Active Substance: PYRIDOSTIGMINE BROMIDE
     Dosage: 60 MG, EVERY 4 HOURS
  7. PROBIOTICS NOS [Concomitant]
     Active Substance: PROBIOTICS NOS
     Dosage: UNK, DAILY
  8. VITAMIN B12 [Concomitant]
     Active Substance: CYANOCOBALAMIN
     Dosage: 1000 ?G, DAILY
  9. VITAMIN C [Concomitant]
     Active Substance: ASCORBIC ACID
     Dosage: 1000 MG, DAILY
  10. VITAMIN D3 [Concomitant]
     Active Substance: CHOLECALCIFEROL
     Dosage: 25 ?G, DAILY
  11. VITAMIN D3 [Concomitant]
     Active Substance: CHOLECALCIFEROL
     Dosage: 1000 IU, 1X/DAY

REACTIONS (9)
  - Nephrolithiasis [Not Recovered/Not Resolved]
  - Tremor [Recovered/Resolved]
  - Rhinorrhoea [Recovered/Resolved]
  - Lip dry [Recovered/Resolved]
  - Hypoaesthesia [Not Recovered/Not Resolved]
  - Abdominal pain upper [Recovered/Resolved]
  - Paraesthesia oral [Recovered/Resolved]
  - Paraesthesia [Recovered/Resolved]
  - Hypoaesthesia oral [Not Recovered/Not Resolved]

NARRATIVE: CASE EVENT DATE: 20220201
